FAERS Safety Report 6263661-0 (Version None)
Quarter: 2009Q3

REPORT INFORMATION
  Report Type: 
  Country: None (occurrence: None)
  Receive Date: 20090710
  Receipt Date: 20090702
  Transmission Date: 20100115
  Serious: Yes (Hospitalization, Other)
  Sender: FDA-Public Use
  Company Number: US-ELI_LILLY_AND_COMPANY-US200905005726

PATIENT
  Sex: Female

DRUGS (2)
  1. FORTEO [Suspect]
     Indication: BONE DISORDER
     Dosage: 20 UG, DAILY (1/D)
     Dates: start: 20071201
  2. PREDNISONE TAB [Concomitant]
     Dates: start: 19690101

REACTIONS (5)
  - DEVICE FAILURE [None]
  - FALL [None]
  - HUMERUS FRACTURE [None]
  - OFF LABEL USE [None]
  - POSTOPERATIVE WOUND INFECTION [None]
